FAERS Safety Report 20995030 (Version 3)
Quarter: 2022Q4

REPORT INFORMATION
  Report Type: Spontaneous
  Country: CA (occurrence: CA)
  Receive Date: 20220622
  Receipt Date: 20221118
  Transmission Date: 20230112
  Serious: Yes (Other)
  Sender: FDA-Public Use
  Company Number: CA-PFIZER INC-202200843092

PATIENT
  Age: 45 Year
  Sex: Male
  Weight: 111 kg

DRUGS (2)
  1. METHOTREXATE SODIUM [Suspect]
     Active Substance: METHOTREXATE SODIUM
     Indication: Rheumatoid arthritis
     Dosage: 10 MG AM - 15 MG PM AT BEDTIME - DISCONTINUED
     Route: 048
     Dates: start: 20130824, end: 20220614
  2. SULFASALAZINE [Suspect]
     Active Substance: SULFASALAZINE
     Indication: Rheumatoid arthritis
     Dosage: 1500 MG, 2X/DAY, DISCONTINUED
     Dates: start: 20130723, end: 20220614

REACTIONS (3)
  - Arthritis [Unknown]
  - Drug ineffective [Unknown]
  - Treatment noncompliance [Unknown]

NARRATIVE: CASE EVENT DATE: 20220613
